FAERS Safety Report 5858897-4 (Version None)
Quarter: 2008Q3

REPORT INFORMATION
  Report Type: 
  Country: None (occurrence: None)
  Receive Date: 20080826
  Receipt Date: 20080821
  Transmission Date: 20090109
  Serious: Yes (Hospitalization)
  Sender: FDA-Public Use
  Company Number: US-GENENTECH-266737

PATIENT
  Age: 54 Year
  Sex: Male

DRUGS (1)
  1. RAPTIVA [Suspect]
     Indication: PSORIASIS

REACTIONS (3)
  - DEAFNESS NEUROSENSORY [None]
  - PYREXIA [None]
  - THROMBOCYTOPENIA [None]
